FAERS Safety Report 21916822 (Version 3)
Quarter: 2023Q1

REPORT INFORMATION
  Report Type: Spontaneous
  Country: US (occurrence: US)
  Receive Date: 20230126
  Receipt Date: 20230316
  Transmission Date: 20230418
  Serious: No
  Sender: FDA-Public Use
  Company Number: US-PFIZER INC-PV202300016120

PATIENT
  Age: 85 Year
  Sex: Female
  Weight: 57.596 kg

DRUGS (2)
  1. IBRANCE [Suspect]
     Active Substance: PALBOCICLIB
     Indication: Breast cancer
     Dosage: 75 MG, DAILY
     Dates: start: 2017
  2. LETROZOLE [Concomitant]
     Active Substance: LETROZOLE
     Indication: Breast cancer
     Dosage: 2.5 MG
     Dates: start: 2017

REACTIONS (3)
  - COVID-19 [Recovered/Resolved]
  - Fatigue [Unknown]
  - Motion sickness [Unknown]
